FAERS Safety Report 22336982 (Version 1)
Quarter: 2023Q2

REPORT INFORMATION
  Report Type: Spontaneous
  Country: US (occurrence: None)
  Receive Date: 20230517
  Receipt Date: 20230517
  Transmission Date: 20230721
  Serious: No
  Sender: FDA-Public Use
  Company Number: None

PATIENT
  Age: 52 Year
  Sex: Male
  Weight: 80.1 kg

DRUGS (1)
  1. FLONASE [Suspect]
     Active Substance: FLUTICASONE PROPIONATE
     Indication: Seasonal allergy
     Dates: start: 20230414, end: 20230511

REACTIONS (4)
  - Muscle swelling [None]
  - Testicular swelling [None]
  - Testicular pain [None]
  - Swelling [None]

NARRATIVE: CASE EVENT DATE: 20230504
